FAERS Safety Report 24049667 (Version 3)
Quarter: 2024Q3

REPORT INFORMATION
  Report Type: Spontaneous
  Country: CO (occurrence: CO)
  Receive Date: 20240704
  Receipt Date: 20240726
  Transmission Date: 20241017
  Serious: Yes (Other)
  Sender: RANBAXY
  Company Number: CO-SUN PHARMACEUTICAL INDUSTRIES LTD-2024R1-454127

PATIENT
  Age: 70 Year
  Sex: Female

DRUGS (2)
  1. ACYCLOVIR [Suspect]
     Active Substance: ACYCLOVIR
     Indication: Toxoplasmosis
     Dosage: UNK
     Route: 065
  2. GANCICLOVIR [Suspect]
     Active Substance: GANCICLOVIR
     Indication: Toxoplasmosis
     Dosage: UNK
     Route: 065

REACTIONS (3)
  - Toxoplasmosis [Recovering/Resolving]
  - Epstein Barr virus positive mucocutaneous ulcer [Recovering/Resolving]
  - Drug ineffective [Unknown]
